FAERS Safety Report 5642745-1 (Version None)
Quarter: 2008Q1

REPORT INFORMATION
  Report Type: 
  Country: None (occurrence: None)
  Receive Date: 20080227
  Receipt Date: 20080227
  Transmission Date: 20080703
  Serious: Yes (Hospitalization)
  Sender: FDA-Public Use
  Company Number: None

PATIENT
  Sex: Male
  Weight: 86.1834 kg

DRUGS (5)
  1. SUBOXONE [Suspect]
     Indication: PAIN
     Dosage: 8MG PO DAILY  (THERAPY DATES: PRIOR TO ADMISSION)
     Route: 048
  2. SEROQUEL [Concomitant]
  3. FLEXERIL [Concomitant]
  4. MOTRIN [Concomitant]
  5. VICODIN [Concomitant]

REACTIONS (4)
  - DROOLING [None]
  - DYSKINESIA [None]
  - MUSCLE SPASMS [None]
  - MYOCLONUS [None]
